FAERS Safety Report 8647834 (Version 4)
Quarter: 2013Q1

REPORT INFORMATION
  Report Type: Report from Study
  Country: NO (occurrence: NO)
  Receive Date: 20120703
  Receipt Date: 20130226
  Transmission Date: 20140127
  Serious: Yes (Other)
  Sender: FDA-Public Use
  Company Number: NO-ROCHE-1082472

PATIENT
  Sex: Female

DRUGS (11)
  1. RITUXIMAB [Suspect]
     Indication: RHEUMATOID ARTHRITIS
     Route: 065
     Dates: start: 200611
  2. RITUXIMAB [Suspect]
     Indication: GRANULOMATOSIS WITH POLYANGIITIS
     Dosage: GIVEN AFTER 1 MONTH FROM THE EVENT
     Route: 065
     Dates: start: 200611
  3. TACROLIMUS [Suspect]
     Indication: GRANULOMATOSIS WITH POLYANGIITIS
     Route: 065
  4. EVEROLIMUS [Suspect]
     Indication: GRANULOMATOSIS WITH POLYANGIITIS
     Route: 065
  5. CYCLOPHOSPHAMIDE [Suspect]
     Indication: GRANULOMATOSIS WITH POLYANGIITIS
     Route: 065
  6. METHOTREXATE [Suspect]
     Indication: GRANULOMATOSIS WITH POLYANGIITIS
     Route: 065
  7. METHOTREXATE [Suspect]
     Indication: OFF LABEL USE
  8. AZATHIOPRINE [Suspect]
     Indication: GRANULOMATOSIS WITH POLYANGIITIS
     Route: 065
  9. IMMUNOGLOBULIN [Concomitant]
     Indication: GRANULOMATOSIS WITH POLYANGIITIS
     Route: 042
  10. PREDNISOLONE [Concomitant]
     Route: 065
  11. MYCOPHENOLATE MOFETIL [Concomitant]
     Indication: GRANULOMATOSIS WITH POLYANGIITIS
     Route: 065

REACTIONS (4)
  - Neutropenia [Recovered/Resolved]
  - Colitis [Unknown]
  - Oral candidiasis [Unknown]
  - Pyrexia [Unknown]
